FAERS Safety Report 7260834-5 (Version None)
Quarter: 2011Q1

REPORT INFORMATION
  Report Type: 
  Country: None (occurrence: None)
  Receive Date: 20110130
  Receipt Date: 20101112
  Transmission Date: 20110831
  Serious: No
  Sender: FDA-Public Use
  Company Number: US-ABBOTT-10P-163-0685103-00

PATIENT
  Age: 58 Year
  Sex: Female

DRUGS (6)
  1. TRAMADOL HCL [Concomitant]
     Indication: FIBROMYALGIA
     Route: 048
  2. MOTRIN [Concomitant]
     Indication: PAIN
  3. TRAMADOL HCL [Concomitant]
     Indication: PELVIC FLOOR MUSCLE WEAKNESS
  4. XANAX [Concomitant]
     Indication: STRESS
     Route: 048
  5. HUMIRA [Suspect]
     Indication: RHEUMATOID ARTHRITIS
     Dates: start: 20100702
  6. XANAX [Concomitant]
     Route: 048

REACTIONS (1)
  - PALPITATIONS [None]
